FAERS Safety Report 8828632 (Version 1)
Quarter: 2012Q4

REPORT INFORMATION
  Report Type: 
  Country: JP (occurrence: JP)
  Receive Date: 20121005
  Receipt Date: 20121005
  Transmission Date: 20130627
  Serious: Yes (Other)
  Sender: FDA-Public Use
  Company Number: JP-BAYER-2012-101702

PATIENT
  Age: 71 Year
  Sex: Male

DRUGS (1)
  1. NEXAVAR [Suspect]
     Dosage: Daily dose 600 mg
     Route: 048
     Dates: start: 20120217, end: 20120927

REACTIONS (1)
  - Ascites [Not Recovered/Not Resolved]
